FAERS Safety Report 7590374-5 (Version None)
Quarter: 2011Q2

REPORT INFORMATION
  Report Type: 
  Country: None (occurrence: None)
  Receive Date: 20110627
  Receipt Date: 20110613
  Transmission Date: 20111010
  Serious: Yes (Disabling)
  Sender: FDA-Public Use
  Company Number: 1000021706

PATIENT
  Age: 65 Year
  Sex: Female

DRUGS (1)
  1. CITALOPRAM HYDROBROMIDE [Suspect]
     Indication: DEPRESSION
     Dosage: 5 MG (5 MG, 1 IN 1 D), ORAL

REACTIONS (9)
  - NIGHT SWEATS [None]
  - APHAGIA [None]
  - PANIC DISORDER [None]
  - INSOMNIA [None]
  - ANXIETY [None]
  - DEPRESSION [None]
  - REFUSAL OF TREATMENT BY PATIENT [None]
  - MUSCLE SPASMS [None]
  - SUICIDAL IDEATION [None]
